FAERS Safety Report 18223136 (Version 4)
Quarter: 2020Q4

REPORT INFORMATION
  Report Type: Report from Study
  Country: US (occurrence: US)
  Receive Date: 20200902
  Receipt Date: 20201110
  Transmission Date: 20210113
  Serious: Yes (Other)
  Sender: FDA-Public Use
  Company Number: US-GILEAD-2020-0492688

PATIENT
  Sex: Female

DRUGS (2)
  1. ADCIRCA [Concomitant]
     Active Substance: TADALAFIL
  2. AMBRISENTAN [Suspect]
     Active Substance: AMBRISENTAN
     Indication: PULMONARY HYPERTENSION
     Dosage: 10 MG, QD
     Route: 048
     Dates: start: 20160805

REACTIONS (10)
  - Haemorrhage [Not Recovered/Not Resolved]
  - Productive cough [Unknown]
  - Diarrhoea [Not Recovered/Not Resolved]
  - Anaemia [Unknown]
  - Toothache [Not Recovered/Not Resolved]
  - Gastric haemorrhage [Unknown]
  - Fungal infection [Not Recovered/Not Resolved]
  - Gingival abscess [Not Recovered/Not Resolved]
  - Systemic scleroderma [Unknown]
  - Gingival pain [Not Recovered/Not Resolved]
